FAERS Safety Report 6510329-9 (Version None)
Quarter: 2009Q4

REPORT INFORMATION
  Report Type: 
  Country: None (occurrence: None)
  Receive Date: 20091222
  Receipt Date: 20091008
  Transmission Date: 20100525
  Serious: No
  Sender: FDA-Public Use
  Company Number: US-ASTRAZENECA-2009SE18948

PATIENT
  Age: 27875 Day
  Sex: Female
  Weight: 78.9 kg

DRUGS (4)
  1. CRESTOR [Suspect]
     Route: 048
     Dates: start: 20090905
  2. DIOVAN [Concomitant]
  3. FISH OIL [Concomitant]
  4. SUPPLEMENTS [Concomitant]

REACTIONS (1)
  - IRRITABILITY [None]
